FAERS Safety Report 25926471 (Version 4)
Quarter: 2025Q4

REPORT INFORMATION
  Report Type: Report from Study
  Country: US (occurrence: US)
  Receive Date: 20251015
  Receipt Date: 20251222
  Transmission Date: 20260117
  Serious: No
  Sender: PFIZER
  Company Number: US-PFIZER INC-202500201574

PATIENT
  Age: 15 Year
  Sex: Female
  Weight: 56.689 kg

DRUGS (1)
  1. GENOTROPIN [Suspect]
     Active Substance: SOMATROPIN
     Indication: Turner^s syndrome
     Dosage: 2.2 MG, ONCE A DAY

REACTIONS (3)
  - Wrong technique in device usage process [Unknown]
  - Device material issue [Unknown]
  - Device breakage [Unknown]
